FAERS Safety Report 12497308 (Version 4)
Quarter: 2016Q4

REPORT INFORMATION
  Report Type: Spontaneous
  Country: IL (occurrence: IL)
  Receive Date: 20160624
  Receipt Date: 20161228
  Transmission Date: 20170207
  Serious: Yes (Life-Threatening, Hospitalization)
  Sender: FDA-Public Use
  Company Number: IL-PFIZER INC-2016314532

PATIENT
  Age: 69 Year
  Sex: Male

DRUGS (4)
  1. DOXYCYCLINE HYCLATE. [Suspect]
     Active Substance: DOXYCYCLINE HYCLATE
     Indication: STAPHYLOCOCCAL INFECTION
     Dosage: UNK
  2. VANCOMYCIN [Suspect]
     Active Substance: VANCOMYCIN
     Indication: STAPHYLOCOCCAL INFECTION
     Dosage: UNK
     Route: 042
  3. VANCOMYCIN [Suspect]
     Active Substance: VANCOMYCIN
     Indication: SEPSIS
     Dosage: UNK
     Route: 042
  4. PIPERACILLIN/TAZOBACTAM [Suspect]
     Active Substance: PIPERACILLIN SODIUM\TAZOBACTAM SODIUM
     Indication: SEPSIS
     Dosage: UNK

REACTIONS (18)
  - Platelet count decreased [None]
  - Foreign body reaction [None]
  - Tachycardia [None]
  - Septic shock [None]
  - Mental status changes [None]
  - Tubulointerstitial nephritis [Unknown]
  - Acute kidney injury [None]
  - Staphylococcal bacteraemia [None]
  - Apnoea [None]
  - Stevens-Johnson syndrome [Unknown]
  - Myocarditis [None]
  - Meningitis [None]
  - Drug reaction with eosinophilia and systemic symptoms [Unknown]
  - Toxic epidermal necrolysis [Unknown]
  - International normalised ratio increased [None]
  - Hepatitis acute [None]
  - Cardiac failure [None]
  - Thyroiditis [None]
